FAERS Safety Report 6811334-5 (Version None)
Quarter: 2010Q2

REPORT INFORMATION
  Report Type: 
  Country: None (occurrence: None)
  Receive Date: 20100630
  Receipt Date: 20100628
  Transmission Date: 20101027
  Serious: Yes (Other)
  Sender: FDA-Public Use
  Company Number: GB-MERCK-1006GBR00057

PATIENT
  Age: 52 Year
  Sex: Female
  Weight: 66 kg

DRUGS (3)
  1. FOSAMAX PLUS D [Suspect]
     Indication: OSTEOPOROSIS
     Route: 048
     Dates: start: 20100501, end: 20100510
  2. LOSARTAN POTASSIUM [Concomitant]
     Indication: HYPERTENSION
     Route: 048
     Dates: start: 20070910
  3. CALCIUM CARBONATE [Concomitant]
     Indication: OSTEOPOROSIS PROPHYLAXIS
     Route: 065
     Dates: start: 20100510

REACTIONS (8)
  - BLINDNESS [None]
  - EYE PAIN [None]
  - HYPOTONY OF EYE [None]
  - OCULAR HYPERAEMIA [None]
  - PALMAR ERYTHEMA [None]
  - PRURITUS [None]
  - RASH GENERALISED [None]
  - VISION BLURRED [None]
